FAERS Safety Report 10341867 (Version 3)
Quarter: 2014Q3

REPORT INFORMATION
  Report Type: Report from Study
  Country: US (occurrence: US)
  Receive Date: 20140725
  Receipt Date: 20140812
  Transmission Date: 20150326
  Serious: Yes (Other)
  Sender: FDA-Public Use
  Company Number: PHEH2012US016458

PATIENT
  Age: 30 Year
  Sex: Female
  Weight: 72.2 kg

DRUGS (1)
  1. GILENYA [Suspect]
     Active Substance: FINGOLIMOD HYDROCHLORIDE
     Indication: MULTIPLE SCLEROSIS
     Dosage: 0.5 MG, QD
     Route: 048
     Dates: start: 20101222, end: 20130307

REACTIONS (22)
  - Visual acuity reduced [Unknown]
  - Temperature intolerance [Unknown]
  - Lhermitte^s sign [Unknown]
  - Vitamin D deficiency [Unknown]
  - Functional gastrointestinal disorder [Unknown]
  - Muscle spasticity [Unknown]
  - Multiple sclerosis relapse [Unknown]
  - Balance disorder [Not Recovered/Not Resolved]
  - Hypoaesthesia [Unknown]
  - Central nervous system lesion [Unknown]
  - Stress [Unknown]
  - Asthenia [Unknown]
  - Central pain syndrome [Unknown]
  - Bladder dysfunction [Unknown]
  - Urinary retention [Unknown]
  - Hypersensitivity [Unknown]
  - Paraesthesia [Not Recovered/Not Resolved]
  - Fatigue [Unknown]
  - Sinus disorder [Unknown]
  - Migraine [Unknown]
  - Optic neuritis [Unknown]
  - Dizziness [Unknown]

NARRATIVE: CASE EVENT DATE: 201108
